FAERS Safety Report 24861520 (Version 1)
Quarter: 2025Q1

REPORT INFORMATION
  Report Type: Spontaneous
  Country: CN (occurrence: CN)
  Receive Date: 20250120
  Receipt Date: 20250120
  Transmission Date: 20250409
  Serious: Yes (Other)
  Sender: ROCHE
  Company Number: CN-CHEPLA-2024014885

PATIENT
  Age: 62 Year
  Sex: Female

DRUGS (4)
  1. TRASTUZUMAB [Suspect]
     Active Substance: TRASTUZUMAB
     Indication: Gastric cancer
     Dosage: APPROVAL NO. GYZZ S20200019/IV INFUSION/260MG IVGTT D1
     Route: 042
     Dates: start: 20241017, end: 20241017
  2. CAPECITABINE [Suspect]
     Active Substance: CAPECITABINE
     Indication: Gastric cancer
     Dosage: APPROVAL NO. GYZZ H20073024/BID/CAPECITABINE 1000MG PO BID D1-14/Q21D
     Route: 048
     Dates: start: 20241017, end: 20241031
  3. OXALIPLATIN [Suspect]
     Active Substance: OXALIPLATIN
     Indication: Gastric cancer
     Dosage: APPROVAL NO. GYZZ J20150117/INTRAVENOUS INFUSION/OXALIPLATIN 180MG IVGTT D1
     Route: 042
     Dates: start: 20241017, end: 20241017
  4. PEMBROLIZUMAB [Suspect]
     Active Substance: PEMBROLIZUMAB
     Indication: Gastric cancer
     Dosage: APPROVAL NO. S20180019/INTRAVENOUS INFUSION/PEMBROLIZUMAB 200MG IVGTT D1
     Route: 042
     Dates: start: 20241017, end: 20241017

REACTIONS (1)
  - Myelosuppression [Recovered/Resolved]

NARRATIVE: CASE EVENT DATE: 20241107
